FAERS Safety Report 7545456-0 (Version None)
Quarter: 2011Q2

REPORT INFORMATION
  Report Type: 
  Country: None (occurrence: None)
  Receive Date: 20110613
  Receipt Date: 20110613
  Transmission Date: 20111010
  Serious: Yes (Hospitalization)
  Sender: FDA-Public Use
  Company Number: None

PATIENT
  Sex: Female
  Weight: 88.5 kg

DRUGS (3)
  1. CARBOPLATIN [Suspect]
     Dosage: 900 MG
     Dates: end: 20110202
  2. TAXOTERE [Suspect]
     Dosage: 160 MG
     Dates: end: 20110202
  3. HERCEPTIN [Suspect]
     Dosage: 360 MG
     Dates: end: 20110202

REACTIONS (1)
  - NEUTROPHIL COUNT DECREASED [None]
